FAERS Safety Report 4718300-4 (Version None)
Quarter: 2005Q3

REPORT INFORMATION
  Report Type: 
  Country: None (occurrence: None)
  Receive Date: 20050718
  Receipt Date: 20050718
  Transmission Date: 20060218
  Serious: Yes (Death)
  Sender: FDA-Public Use
  Company Number: None

PATIENT
  Age: 49 Year
  Sex: Male
  Weight: 74.3899 kg

DRUGS (1)
  1. FENTANYL [Suspect]
     Indication: BACK PAIN
     Dosage: ROUND-THE-CLOC    TRANSDERMA
     Route: 062
     Dates: start: 20020101, end: 20040622

REACTIONS (2)
  - CORONARY ARTERY ATHEROSCLEROSIS [None]
  - OVERDOSE [None]
